FAERS Safety Report 26064955 (Version 2)
Quarter: 2025Q4

REPORT INFORMATION
  Report Type: Spontaneous
  Country: US (occurrence: US)
  Receive Date: 20251119
  Receipt Date: 20251126
  Transmission Date: 20260117
  Serious: Yes (Other)
  Sender: PFIZER
  Company Number: US-PFIZER INC-202500225857

PATIENT
  Age: 62 Year
  Sex: Female

DRUGS (2)
  1. DOBUTAMINE HYDROCHLORIDE [Suspect]
     Active Substance: DOBUTAMINE HYDROCHLORIDE
     Indication: Cardiac pharmacologic stress test
     Dosage: UNK
     Dates: start: 20250828, end: 20250828
  2. DEFINITY [Suspect]
     Active Substance: PERFLUTREN
     Indication: Cardiac pharmacologic stress test
     Dosage: 2 ML OF ACTIVATED DEFINITY

REACTIONS (6)
  - Tachycardia [Recovering/Resolving]
  - Chest pain [Recovering/Resolving]
  - Back pain [Recovering/Resolving]
  - Dyspnoea [Recovering/Resolving]
  - Throat irritation [Recovering/Resolving]
  - Off label use [Unknown]

NARRATIVE: CASE EVENT DATE: 20250828
